FAERS Safety Report 23871076 (Version 1)
Quarter: 2024Q2

REPORT INFORMATION
  Report Type: Spontaneous
  Country: GB (occurrence: GB)
  Receive Date: 20240518
  Receipt Date: 20240518
  Transmission Date: 20240716
  Serious: Yes (Hospitalization)
  Sender: FDA-Public Use
  Company Number: GB-ROCHE-3553158

PATIENT
  Age: 42 Year
  Sex: Female
  Weight: 81.5 kg

DRUGS (3)
  1. TRASTUZUMAB [Suspect]
     Active Substance: TRASTUZUMAB
     Indication: Breast cancer metastatic
     Dosage: UNK, 02/APR/2024 RECEIVED MOST RECENT DOSE PRIOR TO AE.(FIXED DOSE COMBINATION OF 600 MILLIGRAM
     Route: 058
     Dates: start: 20230626
  2. PERTUZUMAB [Suspect]
     Active Substance: PERTUZUMAB
     Indication: Breast cancer metastatic
     Dosage: 02/APR/2024 RECEIVED MOST RECENT DOSE PRIOR TO AE.(FIXED DOSE COMBINATION OF 600MG
     Route: 058
     Dates: start: 20230626
  3. TUCATINIB [Suspect]
     Active Substance: TUCATINIB
     Indication: Breast cancer metastatic
     Dosage: ON 17/APR/2024, RECEIVED LAST DOSE PRIOR TO AE.; ;
     Route: 048
     Dates: start: 20230626

REACTIONS (1)
  - Lower respiratory tract infection [Recovered/Resolved]

NARRATIVE: CASE EVENT DATE: 20240417
